FAERS Safety Report 25654859 (Version 1)
Quarter: 2025Q3

REPORT INFORMATION
  Report Type: Spontaneous
  Country: CN (occurrence: CN)
  Receive Date: 20250807
  Receipt Date: 20250807
  Transmission Date: 20251020
  Serious: Yes (Other)
  Sender: BEIGENE
  Company Number: CN-BEIGENE-BGN-2025-012715

PATIENT
  Age: 62 Year
  Weight: 52.7 kg

DRUGS (20)
  1. TISLELIZUMAB [Suspect]
     Active Substance: TISLELIZUMAB
     Indication: Renal cancer
  2. TISLELIZUMAB [Suspect]
     Active Substance: TISLELIZUMAB
  3. TISLELIZUMAB [Suspect]
     Active Substance: TISLELIZUMAB
     Route: 041
  4. TISLELIZUMAB [Suspect]
     Active Substance: TISLELIZUMAB
     Route: 041
  5. TISLELIZUMAB [Suspect]
     Active Substance: TISLELIZUMAB
  6. TISLELIZUMAB [Suspect]
     Active Substance: TISLELIZUMAB
  7. TISLELIZUMAB [Suspect]
     Active Substance: TISLELIZUMAB
     Route: 041
  8. TISLELIZUMAB [Suspect]
     Active Substance: TISLELIZUMAB
     Route: 041
  9. TISLELIZUMAB [Suspect]
     Active Substance: TISLELIZUMAB
  10. TISLELIZUMAB [Suspect]
     Active Substance: TISLELIZUMAB
  11. TISLELIZUMAB [Suspect]
     Active Substance: TISLELIZUMAB
     Route: 041
  12. TISLELIZUMAB [Suspect]
     Active Substance: TISLELIZUMAB
     Route: 041
  13. TISLELIZUMAB [Suspect]
     Active Substance: TISLELIZUMAB
  14. TISLELIZUMAB [Suspect]
     Active Substance: TISLELIZUMAB
  15. TISLELIZUMAB [Suspect]
     Active Substance: TISLELIZUMAB
     Route: 041
  16. TISLELIZUMAB [Suspect]
     Active Substance: TISLELIZUMAB
     Route: 041
  17. TISLELIZUMAB [Suspect]
     Active Substance: TISLELIZUMAB
  18. TISLELIZUMAB [Suspect]
     Active Substance: TISLELIZUMAB
     Route: 041
  19. TISLELIZUMAB [Suspect]
     Active Substance: TISLELIZUMAB
  20. TISLELIZUMAB [Suspect]
     Active Substance: TISLELIZUMAB
     Route: 041

REACTIONS (1)
  - Hepatocellular injury [Recovering/Resolving]
